FAERS Safety Report 6164233-9 (Version None)
Quarter: 2009Q2

REPORT INFORMATION
  Report Type: 
  Country: None (occurrence: None)
  Receive Date: 20090422
  Receipt Date: 20041130
  Transmission Date: 20091009
  Serious: No
  Sender: FDA-Public Use
  Company Number: CA-SOLVAY-00304004219

PATIENT
  Age: 25943 Day
  Sex: Female

DRUGS (1)
  1. ANDROGEL [Suspect]
     Indication: ACCIDENTAL EXPOSURE
     Dosage: DAILY DOSE:  UNKNOWN
     Route: 062

REACTIONS (1)
  - BREAST PAIN [None]
